FAERS Safety Report 10624887 (Version 2)
Quarter: 2021Q1

REPORT INFORMATION
  Report Type: Spontaneous
  Country: US (occurrence: US)
  Receive Date: 20141204
  Receipt Date: 20210305
  Transmission Date: 20210419
  Serious: Yes (Other)
  Sender: FDA-Public Use
  Company Number: US-AUROBINDO-AUR-APL-2014-12713

PATIENT
  Age: 40 Year
  Sex: Female

DRUGS (3)
  1. METOPROLOL. [Suspect]
     Active Substance: METOPROLOL
     Indication: ISCHAEMIC CARDIOMYOPATHY
     Dosage: UNK
     Route: 065
  2. CARVEDILOL. [Suspect]
     Active Substance: CARVEDILOL
     Indication: PRODUCT USED FOR UNKNOWN INDICATION
     Dosage: UNK
     Route: 065
  3. CARVEDILOL. [Suspect]
     Active Substance: CARVEDILOL
     Dosage: 12.5 MG, TWO TIMES A DAY
     Route: 065

REACTIONS (6)
  - Rash vesicular [Recovered/Resolved]
  - Skin reaction [Recovered/Resolved]
  - Drug hypersensitivity [Recovered/Resolved]
  - Type IV hypersensitivity reaction [Recovered/Resolved]
  - Angioedema [Recovered/Resolved]
  - Rash pruritic [Recovered/Resolved]
